FAERS Safety Report 19772311 (Version 1)
Quarter: 2021Q3

REPORT INFORMATION
  Report Type: Spontaneous
  Country: US (occurrence: US)
  Receive Date: 20210901
  Receipt Date: 20210901
  Transmission Date: 20211014
  Serious: No
  Sender: FDA-Public Use
  Company Number: US-GW PHARMA-202108USGW04198

PATIENT

DRUGS (2)
  1. EPIDIOLEX [Suspect]
     Active Substance: CANNABIDIOL
     Indication: EPILEPSY
     Dosage: 23.94 MG/KG/DAY, 380 MILLIGRAM, BID
     Dates: start: 20210210
  2. HIZENTRA [Concomitant]
     Active Substance: HUMAN IMMUNOGLOBULIN G
     Indication: SELECTIVE IGG SUBCLASS DEFICIENCY
     Dosage: UNK
     Route: 065

REACTIONS (4)
  - Emergency care [Unknown]
  - Prescribed overdose [Unknown]
  - Peripheral swelling [Unknown]
  - Product use in unapproved indication [Unknown]
